FAERS Safety Report 4339970-9 (Version None)
Quarter: 2004Q2

REPORT INFORMATION
  Report Type: 
  Country: None (occurrence: None)
  Receive Date: 20040412
  Receipt Date: 20040401
  Transmission Date: 20050107
  Serious: Yes (Congenital Anomaly)
  Sender: FDA-Public Use
  Company Number: 04P-056-0248834-00

PATIENT
  Sex: Male
  Weight: 3.4 kg

DRUGS (1)
  1. VALPROATE SODIUM [Suspect]
     Dosage: TRANSPLACENTAL
     Route: 064

REACTIONS (11)
  - ASCITES [None]
  - BRADYCARDIA NEONATAL [None]
  - CAESAREAN SECTION [None]
  - CARDIAC ANEURYSM [None]
  - CONGENITAL ATRIAL SEPTAL DEFECT [None]
  - EXTRASYSTOLES [None]
  - FOETAL ARRHYTHMIA [None]
  - HEART DISEASE CONGENITAL [None]
  - HEPATOSPLENOMEGALY [None]
  - MATERNAL DRUGS AFFECTING FOETUS [None]
  - NEONATAL RESPIRATORY DISTRESS SYNDROME [None]
